FAERS Safety Report 16113470 (Version 7)
Quarter: 2019Q3

REPORT INFORMATION
  Report Type: Spontaneous
  Country: US (occurrence: US)
  Receive Date: 20190325
  Receipt Date: 20190912
  Transmission Date: 20191004
  Serious: Yes (Hospitalization, Other)
  Sender: FDA-Public Use
  Company Number: US-PFIZER INC-2019125297

PATIENT
  Age: 34 Year
  Sex: Female
  Weight: 130 kg

DRUGS (6)
  1. IBRANCE [Suspect]
     Active Substance: PALBOCICLIB
     Dosage: 125 MG, CYCLIC (DAY 1-21 Q 28 DAYS)
     Route: 048
     Dates: start: 20190308
  2. IBRANCE [Suspect]
     Active Substance: PALBOCICLIB
     Indication: BREAST CANCER METASTATIC
     Dosage: 125 MG, CYCLIC (TAKE 1 CAP. EVERY DAY FOR 21 DAYS ON AND 7 DAYS OFF)
     Route: 048
     Dates: start: 20190228, end: 2019
  3. LEUPROLIDE ACETATE. [Concomitant]
     Active Substance: LEUPROLIDE ACETATE
     Dosage: UNK (LMG/0.2ML)
  4. LETROZOLE. [Concomitant]
     Active Substance: LETROZOLE
     Dosage: 2.5 MG, DAILY
     Route: 048
     Dates: start: 20190308
  5. ANASTROZOLE. [Concomitant]
     Active Substance: ANASTROZOLE
     Dosage: 1 MG, UNK
     Route: 048
  6. LUPRON DEPOT [Concomitant]
     Active Substance: LEUPROLIDE ACETATE
     Dosage: 22.5 MG, UNK
     Route: 030

REACTIONS (28)
  - Delusional perception [Unknown]
  - Confusional state [Unknown]
  - Insomnia [Unknown]
  - Decreased appetite [Unknown]
  - Chromaturia [Unknown]
  - Proctalgia [Unknown]
  - Knee deformity [Unknown]
  - Blood urine present [Unknown]
  - Pneumonia [Unknown]
  - Cystitis [Unknown]
  - Vomiting [Unknown]
  - Urinary incontinence [Unknown]
  - Urinary tract infection [Unknown]
  - Pain [Unknown]
  - Fall [Unknown]
  - Asthenia [Unknown]
  - Disorientation [Unknown]
  - Loss of consciousness [Unknown]
  - Malaise [Unknown]
  - Dehydration [Unknown]
  - Back pain [Unknown]
  - Dizziness [Unknown]
  - Urine odour abnormal [Unknown]
  - Product dose omission [Unknown]
  - Neoplasm progression [Unknown]
  - Respiratory tract congestion [Unknown]
  - Depression [Unknown]
  - Musculoskeletal stiffness [Unknown]

NARRATIVE: CASE EVENT DATE: 2019
